FAERS Safety Report 21591314 (Version 5)
Quarter: 2022Q4

REPORT INFORMATION
  Report Type: Report from Study
  Country: CA (occurrence: CA)
  Receive Date: 20221114
  Receipt Date: 20221228
  Transmission Date: 20230113
  Serious: Yes (Other)
  Sender: FDA-Public Use
  Company Number: CA-AstraZeneca-2022A368871

PATIENT
  Sex: Female

DRUGS (1)
  1. ENHERTU [Suspect]
     Active Substance: FAM-TRASTUZUMAB DERUXTECAN-NXKI
     Indication: HER2 positive breast cancer
     Dosage: 300 MG, ONCE EVERY 3 WK
     Route: 042
     Dates: start: 20220620

REACTIONS (4)
  - Pneumonia bacterial [Unknown]
  - Pneumonitis [Unknown]
  - Pneumonia [Unknown]
  - Off label use [Unknown]
